FAERS Safety Report 9506427 (Version 1)
Quarter: 2013Q1

REPORT INFORMATION
  Report Type: Spontaneous
  Country: US (occurrence: None)
  Receive Date: 20130301
  Receipt Date: 20130301
  Transmission Date: 20140127
  Serious: Yes (Other)
  Sender: FDA-Public Use
  Company Number: RB-37987-2012

PATIENT
  Age: 54 Year
  Sex: Female

DRUGS (1)
  1. SUBOXONE [Suspect]
     Indication: DRUG DEPENDENCE
     Dosage: TAPERED FROM 32 MG
     Route: 060
     Dates: start: 201103, end: 201202

REACTIONS (7)
  - Underdose [None]
  - Hallucination [None]
  - Tremor [None]
  - Appetite disorder [None]
  - Asthenia [None]
  - Diarrhoea [None]
  - Abdominal pain upper [None]
